FAERS Safety Report 9395118 (Version 2)
Quarter: 2014Q3

REPORT INFORMATION
  Report Type: Report from Study
  Country: AU (occurrence: AU)
  Receive Date: 20130711
  Receipt Date: 20140711
  Transmission Date: 20150326
  Serious: Yes (Other)
  Sender: FDA-Public Use
  Company Number: PHHY2013AU073626

PATIENT
  Sex: Female

DRUGS (4)
  1. ACLASTA [Suspect]
     Active Substance: ZOLEDRONIC ACID
     Dosage: 5 MG, UNK
     Route: 042
     Dates: start: 20110621
  2. ACLASTA [Suspect]
     Active Substance: ZOLEDRONIC ACID
     Dosage: 5 UNK
     Route: 042
     Dates: start: 201307
  3. ACLASTA [Suspect]
     Active Substance: ZOLEDRONIC ACID
     Dosage: 5 MG, UNK
     Route: 042
     Dates: start: 20120613
  4. ACLASTA [Suspect]
     Active Substance: ZOLEDRONIC ACID
     Dosage: 5 MG, UNK
     Route: 042
     Dates: start: 20100710

REACTIONS (6)
  - Spinal fracture [Unknown]
  - Lower limb fracture [Unknown]
  - Decreased activity [Unknown]
  - Movement disorder [Unknown]
  - Gait disturbance [Unknown]
  - Pain [Unknown]

NARRATIVE: CASE EVENT DATE: 2013
